FAERS Safety Report 20884199 (Version 1)
Quarter: 2022Q2

REPORT INFORMATION
  Report Type: Spontaneous
  Country: US (occurrence: None)
  Receive Date: 20220527
  Receipt Date: 20220527
  Transmission Date: 20220720
  Serious: Yes (Life-Threatening, Hospitalization, Disabling, Other)
  Sender: FDA-Public Use
  Company Number: None

PATIENT
  Age: 21 Year
  Sex: Male
  Weight: 76.5 kg

DRUGS (1)
  1. QBREXZA [Suspect]
     Active Substance: GLYCOPYRRONIUM TOSYLATE
     Indication: Hyperhidrosis
     Dosage: OTHER QUANTITY : 1 CLOTH;?OTHER FREQUENCY : EVERT 24HRS;?OTHER ROUTE : APPLY TO UNDERARM ONLY ONCE;?
     Route: 050

REACTIONS (3)
  - Visual impairment [None]
  - Hypermetropia [None]
  - Myopia [None]

NARRATIVE: CASE EVENT DATE: 20220501
